FAERS Safety Report 7961632-7 (Version None)
Quarter: 2011Q4

REPORT INFORMATION
  Report Type: 
  Country: None (occurrence: None)
  Receive Date: 20111207
  Receipt Date: 20111204
  Transmission Date: 20120403
  Serious: Yes (Life-Threatening, Hospitalization)
  Sender: FDA-Public Use
  Company Number: LB-SANOFI-AVENTIS-2011SA079493

PATIENT
  Age: 79 Year
  Sex: Female

DRUGS (2)
  1. CIPROFLOXACIN [Concomitant]
     Indication: PROPHYLAXIS
     Route: 042
     Dates: start: 20111119, end: 20111127
  2. ENOXAPARIN SODIUM [Suspect]
     Route: 058
     Dates: start: 20111120, end: 20111121

REACTIONS (5)
  - LOSS OF CONSCIOUSNESS [None]
  - HAEMATEMESIS [None]
  - MIOSIS [None]
  - HAEMATURIA [None]
  - OXYGEN SATURATION DECREASED [None]
